FAERS Safety Report 13828614 (Version 1)
Quarter: 2017Q3

REPORT INFORMATION
  Report Type: Spontaneous
  Country: CA (occurrence: CA)
  Receive Date: 20170803
  Receipt Date: 20170803
  Transmission Date: 20171127
  Serious: Yes (Other)
  Sender: FDA-Public Use
  Company Number: CA-ORION CORPORATION ORION PHARMA-TREX2017-1748

PATIENT
  Age: 45 Year
  Sex: Female

DRUGS (4)
  1. LYRICA [Suspect]
     Active Substance: PREGABALIN
     Dosage: AT NIGHT
     Route: 065
  2. CELEBREX [Suspect]
     Active Substance: CELECOXIB
     Dosage: AS NEEDED
     Route: 065
  3. METHOTREXATE (TRADE NAME UNKNOWN) [Suspect]
     Active Substance: METHOTREXATE
     Indication: RHEUMATOID ARTHRITIS
     Route: 065
  4. LYRICA [Suspect]
     Active Substance: PREGABALIN
     Dosage: 75 MG INMORNING AND 100 MG AT BEDTIME
     Route: 065
     Dates: start: 201707

REACTIONS (4)
  - Gastric ulcer [Unknown]
  - Sinus congestion [Unknown]
  - Dental discomfort [Unknown]
  - Pain [Unknown]

NARRATIVE: CASE EVENT DATE: 201707
